FAERS Safety Report 26007780 (Version 1)
Quarter: 2025Q4

REPORT INFORMATION
  Report Type: Spontaneous
  Country: US (occurrence: None)
  Receive Date: 20251106
  Receipt Date: 20251106
  Transmission Date: 20260118
  Serious: Yes (Other)
  Sender: FDA-CTU
  Company Number: None

PATIENT
  Age: 34 Year
  Sex: Female

DRUGS (4)
  1. CYANOCOBALAMIN\TOPIRAMATE [Suspect]
     Active Substance: CYANOCOBALAMIN\TOPIRAMATE
     Indication: Weight decreased
     Dosage: FREQUENCY : DAILY;?
     Route: 048
     Dates: start: 20251027, end: 20251104
  2. BUPROPION [Suspect]
     Active Substance: BUPROPION
     Dates: start: 20251027, end: 20251104
  3. ONDANSETRON [Suspect]
     Active Substance: ONDANSETRON
  4. METFORMIN [Suspect]
     Active Substance: METFORMIN HYDROCHLORIDE

REACTIONS (6)
  - Nausea [None]
  - Vomiting [None]
  - Headache [None]
  - Diarrhoea [None]
  - Poor quality sleep [None]
  - Fatigue [None]

NARRATIVE: CASE EVENT DATE: 20251104
